FAERS Safety Report 25287541 (Version 1)
Quarter: 2025Q2

REPORT INFORMATION
  Report Type: Spontaneous
  Country: JP (occurrence: JP)
  Receive Date: 20250509
  Receipt Date: 20250509
  Transmission Date: 20250717
  Serious: Yes (Hospitalization)
  Sender: ORGANON
  Company Number: JP-JT-EVA202502160Dermavant Sciences Inc.

PATIENT
  Age: 83 Year
  Sex: Male

DRUGS (1)
  1. VTAMA [Suspect]
     Active Substance: TAPINAROF
     Route: 061

REACTIONS (1)
  - Hospitalisation [Unknown]
